FAERS Safety Report 6018195-5 (Version None)
Quarter: 2008Q4

REPORT INFORMATION
  Report Type: 
  Country: None (occurrence: None)
  Receive Date: 20081223
  Receipt Date: 20081215
  Transmission Date: 20090506
  Serious: Yes (Other)
  Sender: FDA-Public Use
  Company Number: PHEH2008US11246

PATIENT
  Sex: Male

DRUGS (1)
  1. GLEEVEC [Suspect]

REACTIONS (5)
  - DENTAL CARE [None]
  - ENAMEL ANOMALY [None]
  - ORAL MUCOSAL DISCOLOURATION [None]
  - TEETH BRITTLE [None]
  - TOOTH DISORDER [None]
